FAERS Safety Report 5779971-7 (Version None)
Quarter: 2008Q2

REPORT INFORMATION
  Report Type: 
  Country: None (occurrence: None)
  Receive Date: 20080620
  Receipt Date: 20080613
  Transmission Date: 20081010
  Serious: Yes (Other)
  Sender: FDA-Public Use
  Company Number: CA-JNJFOC-20071201969

PATIENT
  Sex: Female
  Weight: 45.36 kg

DRUGS (5)
  1. CONCERTA [Suspect]
  2. CONCERTA [Suspect]
     Indication: ATTENTION DEFICIT/HYPERACTIVITY DISORDER
  3. TRICYCLEN [Concomitant]
     Indication: CONTRACEPTION
  4. RISPERIDONE [Concomitant]
  5. RISPERIDONE [Concomitant]
     Indication: ANXIETY

REACTIONS (1)
  - ARTHRITIS [None]
